FAERS Safety Report 8025437-3 (Version None)
Quarter: 2012Q1

REPORT INFORMATION
  Report Type: 
  Country: None (occurrence: None)
  Receive Date: 20120105
  Receipt Date: 20111227
  Transmission Date: 20120608
  Serious: Yes (Hospitalization, Other)
  Sender: FDA-Public Use
  Company Number: US-ELI_LILLY_AND_COMPANY-US201005006786

PATIENT
  Sex: Female

DRUGS (13)
  1. FORTEO [Suspect]
     Dosage: 20 UG, QD
     Route: 065
  2. LEVOTHYROXINE SODIUM [Concomitant]
  3. JANTOVEN [Concomitant]
  4. AMLODIPINE [Concomitant]
     Dosage: 2.5 MG, UNK
  5. FORTEO [Suspect]
     Dosage: 20 UG, DAILY (1/D)
  6. FORTEO [Suspect]
     Dosage: 20 UG, DAILY (1/D)
  7. FORTEO [Suspect]
     Dosage: 20 UG, QD
  8. METOPROLOL SUCCINATE [Concomitant]
  9. RAMIPRIL [Concomitant]
  10. METFORMIN HCL [Concomitant]
  11. FORTEO [Suspect]
     Indication: OSTEOPOROSIS
     Dosage: 20 UG, DAILY (1/D)
     Dates: start: 20100309
  12. CLARINEX [Concomitant]
  13. SIMVASTATIN [Concomitant]

REACTIONS (9)
  - HALLUCINATION [None]
  - OSTEOARTHRITIS [None]
  - MUSCULOSKELETAL STIFFNESS [None]
  - MUSCLE SPASMS [None]
  - OVERDOSE [None]
  - MUSCULOSKELETAL DISCOMFORT [None]
  - ARTHROPATHY [None]
  - HYPERSENSITIVITY [None]
  - ARTHRITIS [None]
